FAERS Safety Report 16802572 (Version 1)
Quarter: 2019Q3

REPORT INFORMATION
  Report Type: Spontaneous
  Country: US (occurrence: US)
  Receive Date: 20190912
  Receipt Date: 20190912
  Transmission Date: 20191005
  Serious: Yes (Life-Threatening, Hospitalization, Other)
  Sender: FDA-Public Use
  Company Number: US-ELI_LILLY_AND_COMPANY-US201909005425

PATIENT
  Age: 75 Year
  Sex: Male

DRUGS (12)
  1. OLANZAPINE. [Suspect]
     Active Substance: OLANZAPINE
     Indication: BIPOLAR DISORDER
     Dosage: 5 MG, EACH MORNING
     Route: 048
     Dates: end: 20190819
  2. PHENOBARBITAL. [Concomitant]
     Active Substance: PHENOBARBITAL
     Indication: SEIZURE
     Dosage: UNK, UNKNOWN
  3. ZYPREXA [Suspect]
     Active Substance: OLANZAPINE
     Dosage: 10 MG, OTHER (1 PM)
     Route: 065
     Dates: start: 20190819
  4. KLONOPIN [Concomitant]
     Active Substance: CLONAZEPAM
     Indication: PRODUCT USED FOR UNKNOWN INDICATION
     Dosage: 0.5 MG, TID
     Route: 048
  5. ZOLOFT [Concomitant]
     Active Substance: SERTRALINE HYDROCHLORIDE
     Indication: PRODUCT USED FOR UNKNOWN INDICATION
  6. ZYPREXA [Suspect]
     Active Substance: OLANZAPINE
     Dosage: 20 MG, OTHER (10 PM)
     Route: 065
     Dates: start: 20190819
  7. OLANZAPINE. [Suspect]
     Active Substance: OLANZAPINE
     Dosage: 10 MG, OTHER (1 PM)
     Route: 048
     Dates: start: 20190819
  8. OLANZAPINE. [Suspect]
     Active Substance: OLANZAPINE
     Dosage: 20 MG, OTHER  (10 PM)
     Route: 048
     Dates: start: 20190819
  9. ZYPREXA [Suspect]
     Active Substance: OLANZAPINE
     Dosage: 25 MG, EACH EVENING
     Route: 065
     Dates: end: 20190819
  10. OLANZAPINE. [Suspect]
     Active Substance: OLANZAPINE
     Dosage: 25 MG, EACH EVENING
     Route: 048
     Dates: end: 20190819
  11. KEPPRA [Concomitant]
     Active Substance: LEVETIRACETAM
     Indication: SEIZURE
     Dosage: UNK UNK, UNKNOWN
  12. ZYPREXA [Suspect]
     Active Substance: OLANZAPINE
     Indication: BIPOLAR DISORDER
     Dosage: 5 MG, EACH MORNING
     Route: 065
     Dates: end: 20190819

REACTIONS (12)
  - Unresponsive to stimuli [Recovered/Resolved]
  - Agitation [Recovering/Resolving]
  - Mood swings [Recovering/Resolving]
  - Agitation [Recovered/Resolved]
  - Anxiety [Recovered/Resolved]
  - Mood swings [Recovered/Resolved]
  - Aspiration [Recovered/Resolved]
  - Seizure [Recovered/Resolved]
  - Drug level increased [Unknown]
  - Aggression [Recovered/Resolved]
  - Aggression [Recovering/Resolving]
  - Anxiety [Recovering/Resolving]
